FAERS Safety Report 24241171 (Version 1)
Quarter: 2024Q3

REPORT INFORMATION
  Report Type: Spontaneous
  Country: US (occurrence: US)
  Receive Date: 20240823
  Receipt Date: 20240823
  Transmission Date: 20241016
  Serious: No
  Sender: BRISTOL MYERS SQUIBB
  Company Number: US-BRISTOL-MYERS SQUIBB COMPANY-2024-123712

PATIENT
  Age: 83 Year
  Sex: Female
  Weight: 78 kg

DRUGS (1)
  1. ORENCIA [Suspect]
     Active Substance: ABATACEPT
     Indication: Rheumatoid arthritis
     Dosage: FREQ : EVERY FRIDAY
     Route: 058

REACTIONS (2)
  - Device delivery system issue [Unknown]
  - Hypoacusis [Unknown]
